FAERS Safety Report 10803217 (Version 4)
Quarter: 2015Q4

REPORT INFORMATION
  Report Type: Spontaneous
  Country: DK (occurrence: DK)
  Receive Date: 20150217
  Receipt Date: 20151124
  Transmission Date: 20160304
  Serious: Yes (Hospitalization)
  Sender: FDA-Public Use
  Company Number: PHHY2015DK015778

PATIENT
  Sex: Male
  Weight: 91 kg

DRUGS (7)
  1. OXYCODONE TEVA [Suspect]
     Active Substance: OXYCODONE HYDROCHLORIDE
     Indication: MUSCULOSKELETAL PAIN
     Dosage: 5 MG, BID (STRENGTH: 5MG)
     Route: 048
     Dates: start: 20130213
  2. IBUMETIN [Suspect]
     Active Substance: IBUPROFEN
     Indication: MUSCULOSKELETAL PAIN
     Dosage: 600 MG, TID (STRENGTH 600 MG)
     Route: 048
     Dates: start: 20130213, end: 2013
  3. METRONIDAZOL ^DAK^ [Suspect]
     Active Substance: METRONIDAZOLE
     Indication: PRODUCT USED FOR UNKNOWN INDICATION
     Dosage: STRENGTH: 500 MG.
     Route: 048
     Dates: start: 20140115
  4. PANODIL [Suspect]
     Active Substance: ACETAMINOPHEN
     Indication: MUSCULOSKELETAL PAIN
     Dosage: 1 G, QID (STRENGTH: 500 MG)
     Route: 048
     Dates: start: 2012
  5. OXYNORM [Suspect]
     Active Substance: OXYCODONE HYDROCHLORIDE
     Indication: MUSCULOSKELETAL PAIN
     Dosage: 5 MG, QID (STRENGTH: 5 MG)
     Route: 048
     Dates: start: 20130213, end: 2013
  6. IMADRAX [Suspect]
     Active Substance: AMOXICILLIN
     Indication: ABDOMINAL PAIN
     Dosage: 500 MG, BID (STRENGTH: 500 MG)
     Route: 048
     Dates: start: 20140115, end: 2014
  7. PANTOPRAZOL TEVA [Suspect]
     Active Substance: PANTOPRAZOLE SODIUM
     Indication: ABDOMINAL PAIN
     Route: 048
     Dates: start: 20140115, end: 2014

REACTIONS (12)
  - Abdominal pain [Not Recovered/Not Resolved]
  - Diarrhoea haemorrhagic [Not Recovered/Not Resolved]
  - Nausea [Not Recovered/Not Resolved]
  - Dyspepsia [Not Recovered/Not Resolved]
  - Eosinophilia [Not Recovered/Not Resolved]
  - Vomiting [Not Recovered/Not Resolved]
  - Gastritis [Not Recovered/Not Resolved]
  - Weight decreased [Not Recovered/Not Resolved]
  - Arthralgia [Not Recovered/Not Resolved]
  - Diarrhoea [Not Recovered/Not Resolved]
  - Gastrointestinal disorder [Not Recovered/Not Resolved]
  - Gastrooesophageal reflux disease [Recovered/Resolved]

NARRATIVE: CASE EVENT DATE: 2013
